FAERS Safety Report 20180845 (Version 1)
Quarter: 2021Q4

REPORT INFORMATION
  Report Type: Spontaneous
  Country: US (occurrence: US)
  Receive Date: 20211214
  Receipt Date: 20211214
  Transmission Date: 20220303
  Serious: Yes (Hospitalization, Other)
  Sender: FDA-Public Use
  Company Number: US-MLMSERVICE-20211126-3241515-1

PATIENT
  Age: 69 Year
  Sex: Male

DRUGS (1)
  1. CAPECITABINE [Suspect]
     Active Substance: CAPECITABINE
     Indication: Pancreatic carcinoma

REACTIONS (4)
  - Gastrointestinal injury [Recovered/Resolved]
  - Apoptosis [Recovered/Resolved]
  - Enteritis [Recovered/Resolved]
  - Off label use [Unknown]
